FAERS Safety Report 4579418-2 (Version None)
Quarter: 2005Q1

REPORT INFORMATION
  Report Type: 
  Country: None (occurrence: None)
  Receive Date: 20050209
  Receipt Date: 20050124
  Transmission Date: 20050727
  Serious: Yes (Hospitalization)
  Sender: FDA-Public Use
  Company Number: USA041286521

PATIENT
  Age: 46 Year
  Sex: Male
  Weight: 91 kg

DRUGS (20)
  1. CYMBALTA [Suspect]
     Indication: DEPRESSION
     Dosage: 60 MG/1 DAY
     Dates: start: 20041001, end: 20041201
  2. CIALIS [Concomitant]
  3. DARVOCET-N 100 [Concomitant]
  4. ZESTRIL [Concomitant]
  5. HYDROCHLOROTHIAZIDE [Concomitant]
  6. PRILOSEC (OMEPRZOLE RATIOPHARM) [Concomitant]
  7. PRAMIPEXOLE DIHYDROCHLORIDE) [Concomitant]
  8. CELEBREX [Concomitant]
  9. TRICOR [Concomitant]
  10. PRAVACHOL [Concomitant]
  11. ACTONEL [Concomitant]
  12. ULTRAM [Concomitant]
  13. SERVENT (SALMETEROL XINAFOATE) [Concomitant]
  14. FLOVENT [Concomitant]
  15. KLONOPIN [Concomitant]
  16. ANDROGEL [Concomitant]
  17. NASACORT AQ (TRIAMCINOLONE ACETONIDE) [Concomitant]
  18. OXYCONTIN [Concomitant]
  19. MS CONTIN [Concomitant]
  20. MORPHINE SULFATE [Concomitant]

REACTIONS (13)
  - ABDOMINAL DISTENSION [None]
  - ABDOMINAL PAIN [None]
  - ANAEMIA [None]
  - CHILLS [None]
  - CREATINE URINE INCREASED [None]
  - DIARRHOEA [None]
  - DRUG INTERACTION [None]
  - DYSPNOEA [None]
  - FATIGUE [None]
  - OEDEMA [None]
  - OEDEMA PERIPHERAL [None]
  - PROTEIN URINE PRESENT [None]
  - WEIGHT INCREASED [None]
